FAERS Safety Report 21503319 (Version 1)
Quarter: 2022Q4

REPORT INFORMATION
  Report Type: Spontaneous
  Country: US (occurrence: US)
  Receive Date: 20221025
  Receipt Date: 20221025
  Transmission Date: 20230113
  Serious: No
  Sender: FDA-Public Use
  Company Number: US-SA-SAC20221013001423

PATIENT
  Age: 68 Year
  Sex: Female
  Weight: 50 kg

DRUGS (1)
  1. DUPIXENT [Suspect]
     Active Substance: DUPILUMAB
     Indication: Asthma
     Dosage: 300 MG, QOW
     Route: 058
     Dates: start: 20220317

REACTIONS (5)
  - Cough [Unknown]
  - Rhinorrhoea [Unknown]
  - Chronic obstructive pulmonary disease [Unknown]
  - COVID-19 [Unknown]
  - Asthma [Unknown]

NARRATIVE: CASE EVENT DATE: 20220101
